FAERS Safety Report 7941600-1 (Version None)
Quarter: 2011Q4

REPORT INFORMATION
  Report Type: 
  Country: None (occurrence: None)
  Receive Date: 20111128
  Receipt Date: 20111114
  Transmission Date: 20120403
  Serious: No
  Sender: FDA-Public Use
  Company Number: US-B.I. PHARMACEUTICALS,INC./RIDGEFIELD-2011-BP-26205BP

PATIENT
  Age: 61 Year
  Sex: Female

DRUGS (4)
  1. CARDURA [Concomitant]
     Indication: HYPERTENSION
     Route: 048
  2. CATAPRES-TTS-1 [Suspect]
     Indication: HYPERTENSION
     Dosage: 0.2 MG
     Route: 061
     Dates: start: 20111017
  3. COREG [Concomitant]
     Indication: HYPERTENSION
     Route: 048
  4. SYNTHROID [Concomitant]
     Indication: HYPOTHYROIDISM
     Route: 048

REACTIONS (4)
  - VISION BLURRED [None]
  - BLOOD PRESSURE SYSTOLIC ABNORMAL [None]
  - PALPITATIONS [None]
  - HEADACHE [None]
